FAERS Safety Report 5947370-0 (Version None)
Quarter: 2008Q4

REPORT INFORMATION
  Report Type: 
  Country: None (occurrence: None)
  Receive Date: 20081110
  Receipt Date: 20081104
  Transmission Date: 20090506
  Serious: Yes (Hospitalization, Other)
  Sender: FDA-Public Use
  Company Number: US-PFIZER INC-2008047762

PATIENT
  Sex: Female
  Weight: 59 kg

DRUGS (2)
  1. CHANTIX [Suspect]
     Indication: SMOKING CESSATION THERAPY
     Dates: start: 20080101, end: 20080205
  2. ALL OTHER THERAPEUTIC PRODUCTS [Concomitant]

REACTIONS (13)
  - ANOREXIA [None]
  - ANXIETY [None]
  - APALLIC SYNDROME [None]
  - CRYING [None]
  - DECREASED APPETITE [None]
  - DEPRESSION [None]
  - FEELING OF DESPAIR [None]
  - INSOMNIA [None]
  - PANIC ATTACK [None]
  - SELF ESTEEM DECREASED [None]
  - SPEECH DISORDER [None]
  - SUICIDAL IDEATION [None]
  - WEIGHT DECREASED [None]
